FAERS Safety Report 24924262 (Version 2)
Quarter: 2025Q2

REPORT INFORMATION
  Report Type: Spontaneous
  Country: FR (occurrence: FR)
  Receive Date: 20250204
  Receipt Date: 20250505
  Transmission Date: 20250716
  Serious: Yes (Hospitalization)
  Sender: UCB
  Company Number: None

PATIENT
  Age: 88 Year
  Sex: Male
  Weight: 83 kg

DRUGS (3)
  1. BIMZELX [Suspect]
     Active Substance: BIMEKIZUMAB-BKZX
     Indication: Psoriatic arthropathy
     Route: 058
     Dates: start: 20241219, end: 20250118
  2. INFLUENZA VIRUS VACCINE [Suspect]
     Active Substance: INFLUENZA VIRUS VACCINE
     Indication: Immunisation
     Route: 030
     Dates: start: 20241215, end: 20241215
  3. COMIRNATY (BRETOVAMERAN) [Suspect]
     Active Substance: BRETOVAMERAN
     Indication: Immunisation
     Route: 030
     Dates: start: 20241215, end: 20241215

REACTIONS (2)
  - Acquired haemophilia [Recovering/Resolving]
  - Vaccination complication [Recovering/Resolving]

NARRATIVE: CASE EVENT DATE: 20250115
